FAERS Safety Report 10302334 (Version 1)
Quarter: 2014Q3

REPORT INFORMATION
  Report Type: Spontaneous
  Country: US (occurrence: None)
  Receive Date: 20140709
  Receipt Date: 20140709
  Transmission Date: 20150326
  Serious: Yes (Other)
  Sender: FDA-Public Use
  Company Number: 54973 AE 1546

PATIENT
  Age: 7 Month
  Sex: Male

DRUGS (1)
  1. BABY TEETHING [Suspect]
     Active Substance: ARABICA COFFEE BEAN\ATROPA BELLADONNA\CALCIUM PHOSPHATE\CHAMOMILE
     Indication: TEETHING
     Dosage: 1 TAB
     Route: 060

REACTIONS (3)
  - Convulsion [None]
  - Tremor [None]
  - Eye movement disorder [None]

NARRATIVE: CASE EVENT DATE: 201402
